FAERS Safety Report 9850896 (Version 3)
Quarter: 2014Q1

REPORT INFORMATION
  Report Type: Spontaneous
  Country: DK (occurrence: DK)
  Receive Date: 20140128
  Receipt Date: 20140210
  Transmission Date: 20141002
  Serious: Yes (Other)
  Sender: FDA-Public Use
  Company Number: DK-WATSON-2013-23239

PATIENT
  Age: 60 Year
  Sex: Female

DRUGS (3)
  1. SIMVASTATIN (UNKNOWN) [Suspect]
     Indication: BLOOD CHOLESTEROL INCREASED
     Dosage: 40 MG, DAILY
     Route: 065
  2. CRESTOR [Suspect]
     Indication: BLOOD CHOLESTEROL INCREASED
     Dosage: 20 MG, DAILY
     Route: 065
     Dates: start: 200902
  3. CRESTOR [Suspect]
     Dosage: 40 MG, DAILY
     Route: 065
     Dates: end: 20110310

REACTIONS (8)
  - Myocardial infarction [Unknown]
  - Angina pectoris [Unknown]
  - Myalgia [Recovered/Resolved]
  - Arthralgia [Unknown]
  - Musculoskeletal stiffness [Unknown]
  - Muscular weakness [Unknown]
  - Blood cholesterol increased [Unknown]
  - Drug effect incomplete [Unknown]
